FAERS Safety Report 16115640 (Version 4)
Quarter: 2019Q2

REPORT INFORMATION
  Report Type: Spontaneous
  Country: JP (occurrence: JP)
  Receive Date: 20190326
  Receipt Date: 20190426
  Transmission Date: 20190711
  Serious: Yes (Hospitalization)
  Sender: FDA-Public Use
  Company Number: JP-ROCHE-2289408

PATIENT
  Age: 70 Year
  Sex: Female
  Weight: 45 kg

DRUGS (13)
  1. DEXAMETHASONE. [Suspect]
     Active Substance: DEXAMETHASONE
     Indication: PRODUCT USED FOR UNKNOWN INDICATION
     Route: 065
  2. FAMOTIDINE. [Concomitant]
     Active Substance: FAMOTIDINE
     Dosage: DOSAGE IS UNCERTAIN.
     Route: 042
  3. DENOTAS [Concomitant]
     Active Substance: CALCIUM CARBONATE\CHOLECALCIFEROL\MAGNESIUM CARBONATE
     Dosage: DOSAGE IS UNCERTAIN.
     Route: 048
  4. AVASTIN [Suspect]
     Active Substance: BEVACIZUMAB
     Indication: BREAST CANCER
     Route: 041
     Dates: start: 20180928, end: 20181221
  5. RESTAMIN [DIPHENHYDRAMINE] [Concomitant]
     Dosage: DOSAGE IS UNCERTAIN.
     Route: 048
  6. CILNIDIPINE [Concomitant]
     Active Substance: CILNIDIPINE
     Dosage: DOSAGE IS UNCERTAIN.
     Route: 048
  7. RANMARK [Concomitant]
     Active Substance: DENOSUMAB
     Route: 058
     Dates: start: 20181026
  8. THYRADIN-S [Concomitant]
     Active Substance: LEVOTHYROXINE
     Dosage: DOSAGE IS UNCERTAIN.
     Route: 048
  9. ROZEX [METRONIDAZOLE] [Concomitant]
     Dosage: DOSAGE IS UNCERTAIN.
     Route: 003
  10. PACLITAXEL. [Suspect]
     Active Substance: PACLITAXEL
     Indication: BREAST CANCER
     Route: 041
     Dates: start: 20180928
  11. DEXART [Concomitant]
     Active Substance: DEXAMETHASONE SODIUM PHOSPHATE
     Dosage: DOSAGE IS UNCERTAIN.
     Route: 065
  12. LIVALO [Concomitant]
     Active Substance: PITAVASTATIN CALCIUM
     Dosage: DOSAGE IS UNCERTAIN.
     Route: 048
  13. AZUNOL [SODIUM GUALENATE] [Concomitant]
     Dosage: DOSAGE IS UNCERTAIN.
     Route: 003

REACTIONS (4)
  - Hyperglycaemia [Recovering/Resolving]
  - Urinary tract infection [Recovered/Resolved]
  - Lung infection [Recovered/Resolved]
  - Pneumothorax [Recovered/Resolved]

NARRATIVE: CASE EVENT DATE: 20181005
